FAERS Safety Report 11942537 (Version 1)
Quarter: 2016Q1

REPORT INFORMATION
  Report Type: Spontaneous
  Country: US (occurrence: US)
  Receive Date: 20160125
  Receipt Date: 20160125
  Transmission Date: 20160526
  Serious: No
  Sender: FDA-Public Use
  Company Number: US-UNITED THERAPEUTICS-UNT-2015-006461

PATIENT
  Age: 65 Year
  Sex: Female
  Weight: 66.67 kg

DRUGS (5)
  1. LETAIRIS [Suspect]
     Active Substance: AMBRISENTAN
     Indication: PULMONARY HYPERTENSION
     Dosage: 10 MG, QD
     Route: 048
     Dates: start: 20100715
  2. REMODULIN [Suspect]
     Active Substance: TREPROSTINIL
     Indication: PULMONARY HYPERTENSION
     Dosage: 0.033 ?G/KG/MIN, CONTINUING
     Route: 058
     Dates: start: 20140808
  3. ADCIRCA [Concomitant]
     Active Substance: TADALAFIL
     Indication: PRODUCT USED FOR UNKNOWN INDICATION
  4. LETAIRIS [Suspect]
     Active Substance: AMBRISENTAN
     Indication: HEART DISEASE CONGENITAL
  5. REMODULIN [Suspect]
     Active Substance: TREPROSTINIL
     Indication: PULMONARY ARTERIAL HYPERTENSION

REACTIONS (8)
  - Infusion site pustule [Recovering/Resolving]
  - Dermatitis contact [Unknown]
  - Oedema peripheral [Recovering/Resolving]
  - Infusion site bruising [Recovering/Resolving]
  - Infusion site haemorrhage [Recovering/Resolving]
  - Infusion site discharge [Recovering/Resolving]
  - Infusion site oedema [Recovered/Resolved]
  - Infusion site pain [Unknown]

NARRATIVE: CASE EVENT DATE: 201505
